FAERS Safety Report 15348431 (Version 1)
Quarter: 2018Q3

REPORT INFORMATION
  Report Type: Spontaneous
  Country: PL (occurrence: PL)
  Receive Date: 20180904
  Receipt Date: 20180904
  Transmission Date: 20181010
  Serious: Yes (Hospitalization)
  Sender: FDA-Public Use
  Company Number: PL-JNJFOC-20180840533

PATIENT
  Age: 59 Year
  Sex: Female

DRUGS (3)
  1. IBRUTINIB [Suspect]
     Active Substance: IBRUTINIB
     Indication: CHRONIC LYMPHOCYTIC LEUKAEMIA
     Route: 048
     Dates: start: 20180405
  2. IBRUTINIB [Suspect]
     Active Substance: IBRUTINIB
     Indication: CHRONIC LYMPHOCYTIC LEUKAEMIA
     Route: 048
  3. BISORATIO [Concomitant]
     Indication: HYPERTENSION
     Route: 065

REACTIONS (4)
  - Panic disorder [Unknown]
  - Leukocytosis [Recovering/Resolving]
  - Haemoglobin decreased [Unknown]
  - Thrombocytopenia [Unknown]
